FAERS Safety Report 19003959 (Version 2)
Quarter: 2021Q1

REPORT INFORMATION
  Report Type: Report from Study
  Country: AR (occurrence: AR)
  Receive Date: 20210313
  Receipt Date: 20210317
  Transmission Date: 20210420
  Serious: Yes (Death, Hospitalization)
  Sender: FDA-Public Use
  Company Number: AR-UNITED THERAPEUTICS-UNT-2021-004273

PATIENT
  Age: 36 Year
  Sex: Male

DRUGS (1)
  1. TREPROSTINIL SODIUM (INHALED) [Suspect]
     Active Substance: TREPROSTINIL SODIUM
     Indication: PULMONARY ARTERIAL HYPERTENSION
     Dosage: UNK
     Dates: start: 20180723, end: 20210205

REACTIONS (1)
  - Cardiac valve replacement complication [Fatal]

NARRATIVE: CASE EVENT DATE: 20210204
